FAERS Safety Report 18724095 (Version 1)
Quarter: 2021Q1

REPORT INFORMATION
  Report Type: Report from Study
  Country: BR (occurrence: BR)
  Receive Date: 20210111
  Receipt Date: 20210111
  Transmission Date: 20210419
  Serious: Yes (Other)
  Sender: FDA-Public Use
  Company Number: NVSC2021BR004221

PATIENT
  Sex: Female

DRUGS (3)
  1. ZOMETA [Suspect]
     Active Substance: ZOLEDRONIC ACID
     Indication: PRODUCT USED FOR UNKNOWN INDICATION
     Dosage: UNK
     Route: 065
  2. FULVESTRANT. [Suspect]
     Active Substance: FULVESTRANT
     Indication: PRODUCT USED FOR UNKNOWN INDICATION
     Dosage: UNK, QMO
     Route: 065
     Dates: start: 20201210
  3. ANASTRAZOL [Suspect]
     Active Substance: ANASTROZOLE
     Indication: BONE CANCER METASTATIC
     Dosage: UNK
     Route: 065
     Dates: start: 2019, end: 202012

REACTIONS (3)
  - Malignant neoplasm progression [Unknown]
  - Bone cancer metastatic [Unknown]
  - Drug ineffective [Unknown]
